FAERS Safety Report 8380528-2 (Version None)
Quarter: 2012Q2

REPORT INFORMATION
  Report Type: 
  Country: None (occurrence: None)
  Receive Date: 20120523
  Receipt Date: 20120514
  Transmission Date: 20120825
  Serious: Yes (Disabling)
  Sender: FDA-Public Use
  Company Number: FR-ASTRAZENECA-2012SE31551

PATIENT
  Sex: Male

DRUGS (24)
  1. VINCRISTINE [Suspect]
     Dosage: 2 MG PER COURSE
     Route: 042
     Dates: start: 20111027
  2. CERUBIDINE [Suspect]
     Dosage: 60 MG PER COURSE
     Route: 042
     Dates: start: 20111020
  3. KIDROLASE [Suspect]
     Route: 042
     Dates: start: 20111024
  4. VFEND [Suspect]
     Route: 050
     Dates: start: 20111017, end: 20111127
  5. VALACYCLOVIR HYDROCHLORIDE [Suspect]
     Route: 048
     Dates: start: 20111013, end: 20111207
  6. VINCRISTINE [Suspect]
     Dosage: 2 MG PER COURSE
     Route: 042
     Dates: start: 20111110
  7. CERUBIDINE [Suspect]
     Dosage: 60 MG PER COURSE
     Route: 042
     Dates: start: 20111110
  8. VFEND [Suspect]
     Route: 050
     Dates: start: 20111128, end: 20111205
  9. DEXAMETHASONE [Suspect]
     Dosage: DAILY
     Route: 048
     Dates: start: 20111020, end: 20111127
  10. PHENOXYMETHYL PENICILLIN [Suspect]
     Dosage: 3 000 000 IU
     Route: 048
     Dates: start: 20111118, end: 20111207
  11. KIDROLASE [Suspect]
     Route: 042
     Dates: start: 20111027
  12. KIDROLASE [Suspect]
     Route: 042
     Dates: start: 20111116
  13. CERUBIDINE [Suspect]
     Dosage: 60 MG PER COURSE
     Route: 042
     Dates: start: 20111103
  14. NEXIUM [Suspect]
     Dosage: DAILY
     Route: 048
     Dates: start: 20111017, end: 20111111
  15. VINCRISTINE [Suspect]
     Dosage: 2 MG PER COURSE
     Route: 042
     Dates: start: 20111103
  16. KIDROLASE [Suspect]
     Route: 042
     Dates: start: 20111110
  17. KIDROLASE [Suspect]
     Route: 042
     Dates: start: 20111113
  18. KIDROLASE [Suspect]
     Route: 042
     Dates: start: 20111106
  19. NEXIUM [Suspect]
     Route: 048
     Dates: start: 20111115, end: 20111207
  20. VFEND [Suspect]
     Route: 050
     Dates: start: 20111206, end: 20111207
  21. VINCRISTINE [Suspect]
     Dosage: 2 MG PER COURSE
     Route: 042
     Dates: start: 20111020
  22. KIDROLASE [Suspect]
     Route: 042
     Dates: start: 20111030
  23. KIDROLASE [Suspect]
     Route: 042
     Dates: start: 20111103
  24. CERUBIDINE [Suspect]
     Dosage: 60 MG PER COURSE
     Route: 042
     Dates: start: 20111027

REACTIONS (1)
  - TOXIC OPTIC NEUROPATHY [None]
